FAERS Safety Report 20917999 (Version 1)
Quarter: 2022Q2

REPORT INFORMATION
  Report Type: Spontaneous
  Country: CH (occurrence: CH)
  Receive Date: 20220606
  Receipt Date: 20220606
  Transmission Date: 20220720
  Serious: Yes (Life-Threatening, Hospitalization, Other)
  Sender: FDA-Public Use
  Company Number: CH-SM-2022-10428

PATIENT
  Age: 91 Year
  Sex: Male

DRUGS (17)
  1. ELIQUIS [Suspect]
     Active Substance: APIXABAN
     Indication: Cerebrovascular accident
     Dosage: PAUSED FROM 25DEC2021 UNTIL 27DEC2021
     Route: 048
     Dates: end: 20211225
  2. ELIQUIS [Suspect]
     Active Substance: APIXABAN
     Dosage: PAUSED FROM 04JAN2022 UNTIL 10JAN2022, THEN UNTIL FURTHER NOTICE
     Route: 048
     Dates: end: 20220104
  3. ASPIRIN [Suspect]
     Active Substance: ASPIRIN
     Indication: Product used for unknown indication
     Route: 048
     Dates: start: 20211224, end: 20220104
  4. DAFALGAN [Concomitant]
     Active Substance: ACETAMINOPHEN
     Indication: Product used for unknown indication
     Dosage: DAFALGAN? (PARACETAMOL) 500 MG 1-1-1-1, ZUS?TZLICH IN RESERVE (MAX. 4X/TAG), GESTOPPT W?HREND HOS...
     Route: 048
  5. ESCITALOPRAM OXALATE [Concomitant]
     Active Substance: ESCITALOPRAM OXALATE
     Indication: Product used for unknown indication
     Dosage: ESCITALOPRAM SANDOZ? (ESCITALOPRAM) 10 MG 0.5-0-0-0 SEIT UNBEKANNTE ZEITPUNKT BIS AUF WEITERES
     Route: 048
  6. POLYETHYLENE GLYCOL 3350\POTASSIUM CHLORIDE\SODIUM BICARBONATE\SODIUM [Concomitant]
     Active Substance: POLYETHYLENE GLYCOL 3350\POTASSIUM CHLORIDE\SODIUM BICARBONATE\SODIUM CHLORIDE
     Indication: Product used for unknown indication
     Dosage: EVERY OTHER DAY, CHANGE TO LAXIPEG? (MACROGOL) ?DURING HOSPITALIZATION
     Route: 048
  7. CHOLECALCIFEROL [Concomitant]
     Active Substance: CHOLECALCIFEROL
     Indication: Product used for unknown indication
     Dosage: 4500 IE/ML
     Route: 048
  8. TORSEMIDE [Concomitant]
     Active Substance: TORSEMIDE
     Indication: Product used for unknown indication
     Dosage: 10 MG 1-0.5-0-0, REDUCED DURING HOSPITALIZATION TO 1-0-0-0
     Route: 048
  9. TORSEMIDE [Concomitant]
     Active Substance: TORSEMIDE
     Dosage: 10 MG 1-0.5-0-0, REDUCED DURING HOSPITALIZATION TO 1-0-0-0
  10. METOPROLOL SUCCINATE [Concomitant]
     Active Substance: METOPROLOL SUCCINATE
     Indication: Product used for unknown indication
     Dosage: METO ZEROK? (METOPROLOL) 25 MG 1-0-1-0
     Route: 048
  11. LISINOPRIL [Concomitant]
     Active Substance: LISINOPRIL
     Indication: Product used for unknown indication
     Route: 048
  12. ATORVASTATIN [Concomitant]
     Active Substance: ATORVASTATIN
     Indication: Product used for unknown indication
     Route: 048
  13. SPASMO URGENIN TC [Concomitant]
     Indication: Product used for unknown indication
     Route: 048
  14. VENTOLIN [Concomitant]
     Active Substance: ALBUTEROL SULFATE
     Indication: Product used for unknown indication
     Dosage: VENTOLIN? (SALBUTAMOL) INHALATIV
     Route: 055
  15. ATROVENT [Concomitant]
     Active Substance: IPRATROPIUM BROMIDE
     Indication: Product used for unknown indication
     Dosage: ATROVENT? (IPRATROPIUM), INHALATIV
     Route: 055
  16. SODIUM PICOSULFATE [Concomitant]
     Active Substance: SODIUM PICOSULFATE
     Indication: Product used for unknown indication
     Dosage: LAXOBERON? (NATRIUMPICOSULFAT) IN RESERVE MAX. 2X/TAG, GESTOPPT W?HREND DER HOSPITALISATION ; AS ...
     Route: 048
     Dates: start: 20220104
  17. METAMIZOLE [Concomitant]
     Active Substance: METAMIZOLE
     Indication: Product used for unknown indication
     Dosage: NOVALGIN? (METAMIZOL) 500 MG IN RESERVE MAX. 4X/TAG ; AS NECESSARY
     Route: 048

REACTIONS (11)
  - Haemoptysis [Recovering/Resolving]
  - Upper gastrointestinal haemorrhage [Unknown]
  - Anaemia [Recovering/Resolving]
  - Renal impairment [Unknown]
  - Leukocytosis [Unknown]
  - Melaena [Unknown]
  - Clostridium difficile colitis [Unknown]
  - Respiratory acidosis [Recovering/Resolving]
  - Pneumonia [Unknown]
  - Venous thrombosis [Unknown]
  - Venous thrombosis limb [Unknown]

NARRATIVE: CASE EVENT DATE: 20220104
